FAERS Safety Report 6724088-8 (Version None)
Quarter: 2010Q2

REPORT INFORMATION
  Report Type: 
  Country: None (occurrence: None)
  Receive Date: 20100513
  Receipt Date: 20100510
  Transmission Date: 20101027
  Serious: Yes (Hospitalization)
  Sender: FDA-Public Use
  Company Number: FR-ROCHE-698833

PATIENT
  Sex: Female
  Weight: 51 kg

DRUGS (1)
  1. METHOXY POLYETHYLENE GLYCOL-EPOETIN BETA [Suspect]
     Route: 042
     Dates: start: 20100420, end: 20100420

REACTIONS (2)
  - ANAPHYLACTOID REACTION [None]
  - RASH MACULO-PAPULAR [None]
